FAERS Safety Report 11490519 (Version 20)
Quarter: 2018Q1

REPORT INFORMATION
  Report Type: Spontaneous
  Country: US (occurrence: US)
  Receive Date: 20150910
  Receipt Date: 20180130
  Transmission Date: 20180508
  Serious: Yes (Life-Threatening, Hospitalization, Other)
  Sender: FDA-Public Use
  Company Number: US-PFIZER INC-2015299000

PATIENT
  Age: 78 Year
  Sex: Male
  Weight: 78.93 kg

DRUGS (18)
  1. REVATIO [Suspect]
     Active Substance: SILDENAFIL CITRATE
     Indication: PULMONARY ARTERIAL HYPERTENSION
     Dosage: 2X/DAY
     Route: 048
     Dates: start: 2009
  2. REVATIO [Suspect]
     Active Substance: SILDENAFIL CITRATE
     Dosage: UNK,UNK, 2X/DAY
  3. TRACLEER [Concomitant]
     Active Substance: BOSENTAN
     Dosage: UNK
     Dates: start: 2000
  4. LASIX [Concomitant]
     Active Substance: FUROSEMIDE
     Indication: CARDIAC DISORDER
     Dosage: 40 MG, 2X/DAY (TWO 20 MG TABLET IN THE EVENING)
     Route: 048
  5. SYMBICORT [Concomitant]
     Active Substance: BUDESONIDE\FORMOTEROL FUMARATE DIHYDRATE
     Indication: LUNG DISORDER
     Dosage: UNK UNK, 2X/DAY [HE INHALES, IN THE AM WHEN HE WAKES UP AND PM WHEN GOES TO BED]
     Route: 055
  6. SYMBICORT [Concomitant]
     Active Substance: BUDESONIDE\FORMOTEROL FUMARATE DIHYDRATE
     Indication: SINUSITIS
  7. POTASSIUM CHLORIDE. [Concomitant]
     Active Substance: POTASSIUM CHLORIDE
     Dosage: 2 DF, 2X/DAY
     Route: 048
  8. LASIX [Concomitant]
     Active Substance: FUROSEMIDE
     Indication: OEDEMA
     Dosage: 40 MG, 2X/DAY (TWO 20 MG TABLETS IN THE MORNING
     Route: 048
  9. TRACLEER [Concomitant]
     Active Substance: BOSENTAN
     Indication: LUNG DISORDER
     Dosage: 125 MG, 2X/DAY
     Dates: start: 2009
  10. TAVIST-D [Concomitant]
     Active Substance: CLEMASTINE FUMARATE\PHENYLPROPANOLAMINE HYDROCHLORIDE
     Dosage: UNK
  11. SYMBICORT [Concomitant]
     Active Substance: BUDESONIDE\FORMOTEROL FUMARATE DIHYDRATE
     Indication: SINUS DISORDER
     Dosage: UNK
  12. ELIQUIS [Suspect]
     Active Substance: APIXABAN
     Indication: ANTICOAGULANT THERAPY
     Dosage: 5 MG, 2X/DAY
  13. PRAVASTATIN. [Concomitant]
     Active Substance: PRAVASTATIN
     Indication: CARDIAC DISORDER
     Dosage: 1 TABLET, 1X/DAY, (IN THE EVENING)
  14. SYMBICORT [Concomitant]
     Active Substance: BUDESONIDE\FORMOTEROL FUMARATE DIHYDRATE
     Indication: NASAL DISORDER
     Dosage: UNK
  15. REVATIO [Suspect]
     Active Substance: SILDENAFIL CITRATE
     Indication: DYSPNOEA
     Dosage: 2 DF, 3X/DAY
     Dates: start: 2010, end: 20171102
  16. REVATIO [Suspect]
     Active Substance: SILDENAFIL CITRATE
     Dosage: 40 MG, 3X/DAY
     Route: 048
  17. REVATIO [Suspect]
     Active Substance: SILDENAFIL CITRATE
     Indication: LUNG DISORDER
     Dosage: 20 MG, 3X/DAY
     Route: 048
     Dates: start: 200908
  18. REVATIO [Suspect]
     Active Substance: SILDENAFIL CITRATE
     Dosage: 40 MG, 3X/DAY(TWO TABLETS BY MORNING)
     Dates: start: 2010, end: 20171102

REACTIONS (27)
  - Drug dose omission [Not Recovered/Not Resolved]
  - Tooth disorder [Unknown]
  - Dyspnoea [Unknown]
  - Anaemia [Unknown]
  - Nasopharyngitis [Unknown]
  - Fall [Unknown]
  - Toothache [Recovered/Resolved]
  - Fatigue [Unknown]
  - Somnolence [Unknown]
  - Cardiac failure congestive [Unknown]
  - Depressed level of consciousness [Unknown]
  - Weight decreased [Unknown]
  - Gingival disorder [Not Recovered/Not Resolved]
  - Asthenia [Unknown]
  - Heart rate abnormal [Unknown]
  - Withdrawal syndrome [Not Recovered/Not Resolved]
  - Dysphonia [Unknown]
  - Depression [Not Recovered/Not Resolved]
  - Gait disturbance [Unknown]
  - Myocardial infarction [Unknown]
  - Malaise [Unknown]
  - Oropharyngeal pain [Recovering/Resolving]
  - Visual impairment [Unknown]
  - Pneumonia [Unknown]
  - Paranasal sinus injury [Unknown]
  - Epistaxis [Unknown]
  - Product use issue [Not Recovered/Not Resolved]

NARRATIVE: CASE EVENT DATE: 2016
